FAERS Safety Report 14807692 (Version 3)
Quarter: 2019Q3

REPORT INFORMATION
  Report Type: Spontaneous
  Country: AU (occurrence: AU)
  Receive Date: 20180425
  Receipt Date: 20190905
  Transmission Date: 20191004
  Serious: Yes (Other)
  Sender: FDA-Public Use
  Company Number: AU-009507513-1804AUS009995

PATIENT
  Sex: Male

DRUGS (4)
  1. MONTELUKAST SODIUM. [Suspect]
     Active Substance: MONTELUKAST SODIUM
     Indication: GRAFT VERSUS HOST DISEASE
     Route: 048
  2. GLIVEC [Suspect]
     Active Substance: IMATINIB MESYLATE
     Indication: GRAFT VERSUS HOST DISEASE IN LUNG
     Dosage: 100 MG, QD
     Route: 048
     Dates: start: 20170323, end: 2019
  3. AZITHROMYCIN ANHYDROUS. [Suspect]
     Active Substance: AZITHROMYCIN ANHYDROUS
     Indication: GRAFT VERSUS HOST DISEASE
  4. CORTICOSTEROIDS (UNSPECIFIED) [Suspect]
     Active Substance: UNSPECIFIED INGREDIENT
     Indication: GRAFT VERSUS HOST DISEASE

REACTIONS (5)
  - Graft versus host disease [Not Recovered/Not Resolved]
  - Drug ineffective for unapproved indication [Unknown]
  - Pneumothorax [Unknown]
  - Product use in unapproved indication [Unknown]
  - Subcutaneous emphysema [Unknown]
